FAERS Safety Report 5064949-1 (Version None)
Quarter: 2006Q3

REPORT INFORMATION
  Report Type: 
  Country: None (occurrence: None)
  Receive Date: 20060727
  Receipt Date: 20060727
  Transmission Date: 20061208
  Serious: No
  Sender: FDA-Public Use
  Company Number: None

PATIENT
  Age: 84 Year
  Sex: Female
  Weight: 58.0604 kg

DRUGS (1)
  1. OXYBUTYNIN    5 MG   PLIVS [Suspect]
     Indication: HYPERTONIC BLADDER
     Dosage: 5MG   TWICE A DAY   OTHER
     Route: 050
     Dates: start: 20060725, end: 20060727

REACTIONS (3)
  - DRUG INEFFECTIVE [None]
  - NOCTURIA [None]
  - PHARMACEUTICAL PRODUCT COMPLAINT [None]
